FAERS Safety Report 10219981 (Version 2)
Quarter: 2014Q2

REPORT INFORMATION
  Report Type: Spontaneous
  Country: PH (occurrence: PH)
  Receive Date: 20140605
  Receipt Date: 20140613
  Transmission Date: 20141212
  Serious: Yes (Hospitalization)
  Sender: FDA-Public Use
  Company Number: PH-B.I. PHARMACEUTICALS,INC./RIDGEFIELD-2014-BI-24992RP

PATIENT
  Age: 50 Year
  Sex: Female

DRUGS (11)
  1. TRAJENTA [Suspect]
     Indication: DIABETES MELLITUS
     Dosage: 5 MG
     Route: 048
     Dates: start: 201405, end: 20140531
  2. SIMVASTATIN [Concomitant]
     Indication: DYSLIPIDAEMIA
     Route: 065
  3. ALLOPURINOL [Concomitant]
     Dosage: 300 MG
     Route: 065
  4. CLOPIDOGREL [Concomitant]
     Dosage: 75 MG
     Route: 065
  5. SODIUM BICARBONATE [Concomitant]
     Dosage: 3 ANZ
     Route: 065
  6. REOCORMAN [Concomitant]
     Dosage: 5000 NR
     Route: 065
  7. CALCIUM CARBONATE [Concomitant]
     Dosage: 6 ANZ
     Route: 065
  8. FERROUS SULFATE [Concomitant]
     Route: 065
  9. AMBROXOL [Concomitant]
     Dosage: 90 MG
     Route: 065
  10. CARVEDILOL [Concomitant]
     Indication: HYPERTENSION
     Dosage: 6.25 MG
     Route: 065
  11. AMLODIPINE [Concomitant]
     Indication: HYPERTENSION
     Dosage: 10 MG
     Route: 065

REACTIONS (1)
  - Rhabdomyolysis [Not Recovered/Not Resolved]
